FAERS Safety Report 22315719 (Version 1)
Quarter: 2023Q2

REPORT INFORMATION
  Report Type: Spontaneous
  Country: US (occurrence: None)
  Receive Date: 20230511
  Receipt Date: 20230511
  Transmission Date: 20230721
  Serious: No
  Sender: FDA-Public Use
  Company Number: None

PATIENT
  Age: 53 Year
  Sex: Female

DRUGS (1)
  1. XELODA [Suspect]
     Active Substance: CAPECITABINE
     Dosage: FREQUENCY : TWICE A DAY;?
     Route: 048

REACTIONS (10)
  - Incontinence [None]
  - Dry skin [None]
  - Muscle spasms [None]
  - Ageusia [None]
  - Anosmia [None]
  - Pain in extremity [None]
  - Pain [None]
  - Rheumatoid arthritis [None]
  - Therapy interrupted [None]
  - Pneumonia [None]

NARRATIVE: CASE EVENT DATE: 20230411
